FAERS Safety Report 4313415-7 (Version None)
Quarter: 2004Q1

REPORT INFORMATION
  Report Type: 
  Country: None (occurrence: None)
  Receive Date: 20040304
  Receipt Date: 20040218
  Transmission Date: 20041129
  Serious: Yes (Hospitalization, Other)
  Sender: FDA-Public Use
  Company Number: USA040156333

PATIENT
  Age: 77 Year
  Sex: Female
  Weight: 76 kg

DRUGS (9)
  1. FORTEO [Suspect]
     Indication: OSTEOPOROSIS
     Dosage: 20 UG/DAY
     Dates: start: 20030924
  2. FUROSEMIDE [Concomitant]
  3. FOSAMAX [Concomitant]
  4. LIPITOR [Concomitant]
  5. ALLOPURINOL [Concomitant]
  6. MICARDIS [Concomitant]
  7. NORVASC [Concomitant]
  8. REGLAN [Concomitant]
  9. ASPIRIN [Concomitant]

REACTIONS (8)
  - COLITIS [None]
  - CONDITION AGGRAVATED [None]
  - DIALYSIS [None]
  - GASTROINTESTINAL HAEMORRHAGE [None]
  - HYPERTENSION [None]
  - PHARMACEUTICAL PRODUCT COMPLAINT [None]
  - POLYP [None]
  - RENAL FAILURE [None]
